FAERS Safety Report 13527736 (Version 1)
Quarter: 2017Q2

REPORT INFORMATION
  Report Type: Spontaneous
  Country: GB (occurrence: GB)
  Receive Date: 20170509
  Receipt Date: 20170509
  Transmission Date: 20170830
  Serious: Yes (Other)
  Sender: FDA-Public Use
  Company Number: GB-PFIZER INC-2017199017

PATIENT
  Sex: Female

DRUGS (3)
  1. ATENOLOL. [Suspect]
     Active Substance: ATENOLOL
     Dosage: ADMINISTERING A DOSE OF HALF TABLET ONCE A DAY. UNKNOWN
     Route: 048
  2. ATENOLOL. [Suspect]
     Active Substance: ATENOLOL
     Indication: HYPERTENSION
     Dosage: 25.0MG UNKNOWN
     Route: 048
  3. CANDESARTAN. [Concomitant]
     Active Substance: CANDESARTAN
     Indication: HYPERTENSION
     Dosage: UNK

REACTIONS (4)
  - Loss of consciousness [Unknown]
  - Heart rate decreased [Unknown]
  - Tinnitus [Unknown]
  - Wrong technique in product usage process [Unknown]
